FAERS Safety Report 24296761 (Version 1)
Quarter: 2024Q3

REPORT INFORMATION
  Report Type: Spontaneous
  Country: CN (occurrence: CN)
  Receive Date: 20240909
  Receipt Date: 20240909
  Transmission Date: 20241017
  Serious: Yes (Other)
  Sender: ABBVIE
  Company Number: CN-PFIZER INC-PV202400113631

PATIENT
  Age: 48 Year
  Sex: Male
  Weight: 83 kg

DRUGS (4)
  1. AVIBACTAM SODIUM [Suspect]
     Active Substance: AVIBACTAM SODIUM
     Indication: Klebsiella infection
     Dosage: DOSE ADJUSTED ACCORDING TO THE PATIENT^S RENAL FUNCTION, FIRST ADMIN DATE-2023
     Route: 042
     Dates: end: 20230616
  2. AVIBACTAM SODIUM [Suspect]
     Active Substance: AVIBACTAM SODIUM
     Indication: Klebsiella infection
     Dosage: TIME INTERVAL: 0.33333333 DAYS: 1.25 G, 3X/DAY (FOR INITIAL TREATMENT), LAST ADMIN DATE-2023
     Route: 042
     Dates: start: 202305
  3. SODIUM CHLORIDE [Concomitant]
     Active Substance: SODIUM CHLORIDE
     Indication: Vehicle solution use
     Dosage: DOSE WAS ADJUSTED ACCORDING TO THE PATIENT^S RENAL FUNCTION, FIRST ADMIN DATE-2023
     Route: 065
     Dates: end: 20230616
  4. SODIUM CHLORIDE [Concomitant]
     Active Substance: SODIUM CHLORIDE
     Indication: Vehicle solution use
     Dosage: TIME INTERVAL: 0.33333333 DAYS: 100 ML, 3X/DAY (FOR INITIAL TREATMENT), LAST ADMIN DATE-2023
     Route: 065
     Dates: start: 202305

REACTIONS (2)
  - Neutrophilia [Recovered/Resolved]
  - Thrombocytosis [Recovered/Resolved]

NARRATIVE: CASE EVENT DATE: 20230601
